FAERS Safety Report 6326965-9 (Version None)
Quarter: 2009Q3

REPORT INFORMATION
  Report Type: 
  Country: None (occurrence: None)
  Receive Date: 20090825
  Receipt Date: 20090813
  Transmission Date: 20100115
  Serious: Yes (Hospitalization)
  Sender: FDA-Public Use
  Company Number: FR-WYE-H10626009

PATIENT
  Age: 68 Year
  Sex: Female

DRUGS (6)
  1. INIPOMP [Suspect]
     Route: 048
     Dates: start: 20090512, end: 20090615
  2. COVERSYL [Concomitant]
     Indication: HYPERTENSION
     Dosage: UNKNOWN
  3. GLUCOPHAGE [Concomitant]
     Indication: DIABETES MELLITUS
     Dosage: UNKNOWN
  4. DIAMICRON [Concomitant]
     Indication: DIABETES MELLITUS
     Dosage: UNKNOWN
  5. ASPEGIC 1000 [Concomitant]
     Indication: ISCHAEMIC STROKE
     Dosage: UNKNOWN
  6. PLAVIX [Concomitant]
     Indication: ISCHAEMIC STROKE
     Dosage: UNKNOWN

REACTIONS (1)
  - HYPONATRAEMIA [None]
